FAERS Safety Report 12190532 (Version 1)
Quarter: 2016Q1

REPORT INFORMATION
  Report Type: Spontaneous
  Country: US (occurrence: US)
  Receive Date: 20160318
  Receipt Date: 20160318
  Transmission Date: 20160526
  Serious: Yes (Hospitalization)
  Sender: FDA-Public Use
  Company Number: US-ZYDUS-008665

PATIENT
  Age: 33 Year
  Sex: Female

DRUGS (4)
  1. HYDROCHLOROTHIAZIDE/LISINOPRIL [Concomitant]
     Indication: HYPERTENSION
     Dosage: 25/12.5 MG ONCE DAILY
     Dates: start: 2010
  2. LAMOTRIGINE. [Suspect]
     Active Substance: LAMOTRIGINE
     Indication: MIGRAINE
     Route: 048
     Dates: start: 20141121, end: 20141208
  3. IBUPROFEN. [Concomitant]
     Active Substance: IBUPROFEN
  4. VITAMINS NOS [Concomitant]
     Active Substance: VITAMINS

REACTIONS (8)
  - Dyspnoea [Not Recovered/Not Resolved]
  - Mouth ulceration [Recovered/Resolved]
  - Urticaria [Recovered/Resolved]
  - Pruritus [Recovered/Resolved]
  - Stevens-Johnson syndrome [Not Recovered/Not Resolved]
  - Rash generalised [Not Recovered/Not Resolved]
  - Acne [Not Recovered/Not Resolved]
  - Nasal congestion [Not Recovered/Not Resolved]

NARRATIVE: CASE EVENT DATE: 201412
